FAERS Safety Report 13684208 (Version 2)
Quarter: 2017Q2

REPORT INFORMATION
  Report Type: Spontaneous
  Country: US (occurrence: US)
  Receive Date: 20170623
  Receipt Date: 20170623
  Transmission Date: 20170830
  Serious: No
  Sender: FDA-Public Use
  Company Number: US-ASTELLAS-2017US012740

PATIENT
  Age: 84 Year
  Sex: Female

DRUGS (3)
  1. VESICARE [Suspect]
     Active Substance: SOLIFENACIN SUCCINATE
     Indication: HYPERTONIC BLADDER
     Route: 065
  2. VESICARE [Suspect]
     Active Substance: SOLIFENACIN SUCCINATE
     Route: 065
     Dates: start: 201703, end: 201703
  3. VESICARE [Suspect]
     Active Substance: SOLIFENACIN SUCCINATE
     Indication: HYPERTONIC BLADDER
     Route: 065
     Dates: start: 201703

REACTIONS (6)
  - Pollakiuria [Recovering/Resolving]
  - Dry throat [Unknown]
  - Fatigue [Recovered/Resolved]
  - Dysphonia [Recovered/Resolved]
  - Drug ineffective [Unknown]
  - Urinary incontinence [Recovering/Resolving]

NARRATIVE: CASE EVENT DATE: 201703
